FAERS Safety Report 5880228-4 (Version None)
Quarter: 2008Q3

REPORT INFORMATION
  Report Type: 
  Country: None (occurrence: None)
  Receive Date: 20080912
  Receipt Date: 20080904
  Transmission Date: 20090109
  Serious: Yes (Other)
  Sender: FDA-Public Use
  Company Number: US-PFIZER INC-2008074471

PATIENT

DRUGS (4)
  1. CELEBREX [Suspect]
     Dosage: DAILY DOSE:200MG
  2. CIPROFLOXACIN [Concomitant]
  3. VICODIN [Concomitant]
  4. ASPIRIN [Concomitant]

REACTIONS (1)
  - BLEEDING TIME PROLONGED [None]
